FAERS Safety Report 24755040 (Version 6)
Quarter: 2025Q2

REPORT INFORMATION
  Report Type: Spontaneous
  Country: JP (occurrence: JP)
  Receive Date: 20241219
  Receipt Date: 20250610
  Transmission Date: 20250717
  Serious: Yes (Death, Life-Threatening, Hospitalization, Disabling, Other)
  Sender: ALEXION PHARMACEUTICALS
  Company Number: JP-ASTRAZENECA-240142042_013120_P_1

PATIENT
  Age: 51 Year
  Weight: 52 kg

DRUGS (4)
  1. DURVALUMAB [Suspect]
     Active Substance: DURVALUMAB
     Indication: Endometrial cancer
     Dosage: 1200 MILLIGRAM, Q3W
  2. CARBOPLATIN [Suspect]
     Active Substance: CARBOPLATIN
     Indication: Endometrial cancer
     Route: 065
  3. PACLITAXEL [Concomitant]
     Active Substance: PACLITAXEL
     Indication: Endometrial cancer
     Route: 065
  4. PACLITAXEL [Concomitant]
     Active Substance: PACLITAXEL
     Route: 065

REACTIONS (8)
  - Duodenal ulcer haemorrhage [Fatal]
  - Blood bilirubin increased [Recovered/Resolved]
  - Hypercapnia [Unknown]
  - Immune-mediated myositis [Recovering/Resolving]
  - Sepsis [Recovered/Resolved]
  - Pneumothorax [Unknown]
  - Immune-mediated myasthenia gravis [Not Recovered/Not Resolved]
  - Vasculitis [Unknown]
